FAERS Safety Report 5049043-8 (Version None)
Quarter: 2006Q3

REPORT INFORMATION
  Report Type: 
  Country: None (occurrence: None)
  Receive Date: 20060712
  Receipt Date: 20060201
  Transmission Date: 20061208
  Serious: No
  Sender: FDA-Public Use
  Company Number: US-GLAXOSMITHKLINE-A0591956A

PATIENT
  Age: 41 Year
  Sex: Female

DRUGS (2)
  1. IMITREX [Suspect]
     Indication: MIGRAINE
     Dosage: 100MG VARIABLE DOSE
     Route: 048
     Dates: start: 20060201, end: 20060201
  2. SEASONALE [Concomitant]

REACTIONS (4)
  - FEELING ABNORMAL [None]
  - FEELING DRUNK [None]
  - HEADACHE [None]
  - NAUSEA [None]
